FAERS Safety Report 23810830 (Version 1)
Quarter: 2024Q2

REPORT INFORMATION
  Report Type: Spontaneous
  Country: US (occurrence: None)
  Receive Date: 20240502
  Receipt Date: 20240502
  Transmission Date: 20240716
  Serious: Yes (Disabling)
  Sender: FDA-Public Use
  Company Number: None

PATIENT
  Age: 54 Year
  Sex: Female
  Weight: 74.84 kg

DRUGS (9)
  1. TEPEZZA [Suspect]
     Active Substance: TEPROTUMUMAB-TRBW
     Indication: Endocrine ophthalmopathy
     Dates: end: 20211123
  2. VITAMIN D [Concomitant]
     Active Substance: VITAMIN D NOS
  3. HERBALS\TURMERIC [Concomitant]
     Active Substance: HERBALS\TURMERIC
  4. CALCIUM [Concomitant]
     Active Substance: CALCIUM
  5. SELENIUM [Concomitant]
     Active Substance: SELENIUM
  6. CANNABIDIOL [Concomitant]
     Active Substance: CANNABIDIOL
  7. METHIMAZOLE [Concomitant]
     Active Substance: METHIMAZOLE
  8. PROPRANOLOL HYDROCHLORIDE [Concomitant]
     Active Substance: PROPRANOLOL HYDROCHLORIDE
  9. FOSAMAX [Concomitant]
     Active Substance: ALENDRONATE SODIUM

REACTIONS (4)
  - Haemorrhage [None]
  - Gingival recession [None]
  - Loose tooth [None]
  - Deafness [None]

NARRATIVE: CASE EVENT DATE: 20210810
